FAERS Safety Report 4903436-5 (Version None)
Quarter: 2006Q1

REPORT INFORMATION
  Report Type: 
  Country: None (occurrence: None)
  Receive Date: 20060206
  Receipt Date: 20060206
  Transmission Date: 20060701
  Serious: Yes (Other)
  Sender: FDA-Public Use
  Company Number: None

PATIENT
  Sex: Female
  Weight: 3.082 kg

DRUGS (2)
  1. CELEXA [Suspect]
     Dosage: 80 MG DAILY PO
     Route: 048
  2. LAMICTAL [Suspect]
     Dosage: 300 MG DAILY PO
     Route: 048

REACTIONS (6)
  - AGITATION NEONATAL [None]
  - BLOOD GLUCOSE ABNORMAL [None]
  - DRUG EXPOSURE DURING PREGNANCY [None]
  - DRUG EXPOSURE VIA BREAST MILK [None]
  - FEEDING DISORDER NEONATAL [None]
  - TEMPERATURE REGULATION DISORDER [None]
